FAERS Safety Report 10879340 (Version 1)
Quarter: 2015Q1

REPORT INFORMATION
  Report Type: Spontaneous
  Country: US (occurrence: US)
  Receive Date: 20150302
  Receipt Date: 20150302
  Transmission Date: 20150721
  Serious: Yes (Other)
  Sender: FDA-Public Use
  Company Number: US-GLAXOSMITHKLINE-US2015GSK027137

PATIENT
  Sex: Female

DRUGS (1)
  1. ADVAIR HFA [Suspect]
     Active Substance: FLUTICASONE PROPIONATE\SALMETEROL XINAFOATE
     Indication: CHRONIC OBSTRUCTIVE PULMONARY DISEASE
     Dosage: UNK
     Route: 065
     Dates: start: 200901, end: 201011

REACTIONS (6)
  - Hypoventilation [Unknown]
  - Urinary tract infection [Unknown]
  - Myocardial infarction [Unknown]
  - Sepsis [Unknown]
  - Acute respiratory failure [Unknown]
  - Hypercapnia [Unknown]
